FAERS Safety Report 7440626-4 (Version None)
Quarter: 2011Q2

REPORT INFORMATION
  Report Type: 
  Country: None (occurrence: None)
  Receive Date: 20110427
  Receipt Date: 20110425
  Transmission Date: 20111010
  Serious: Yes (Other)
  Sender: FDA-Public Use
  Company Number: B0715588A

PATIENT
  Age: 57 Year
  Sex: Male

DRUGS (1)
  1. ROSIGLITAZONE MALEATE [Suspect]
     Route: 048
     Dates: start: 20021201, end: 20081101

REACTIONS (3)
  - SYNCOPE [None]
  - DIZZINESS [None]
  - PAIN [None]
